FAERS Safety Report 7393773-X (Version None)
Quarter: 2011Q1

REPORT INFORMATION
  Report Type: 
  Country: None (occurrence: None)
  Receive Date: 20110330
  Receipt Date: 20110330
  Transmission Date: 20110831
  Serious: Yes (Other)
  Sender: FDA-Public Use
  Company Number: None

PATIENT
  Age: 30 Year
  Sex: Female
  Weight: 59.4212 kg

DRUGS (1)
  1. LEVAQUIN [Suspect]
     Indication: URINARY TRACT INFECTION
     Dosage: 1 PILL -750- DAILY PO
     Route: 048
     Dates: start: 20101025, end: 20101028

REACTIONS (9)
  - SYNCOPE [None]
  - INSOMNIA [None]
  - TREMOR [None]
  - DECREASED APPETITE [None]
  - NAUSEA [None]
  - DIZZINESS [None]
  - ABDOMINAL PAIN UPPER [None]
  - TUNNEL VISION [None]
  - HEART RATE INCREASED [None]
